FAERS Safety Report 6592880-9 (Version None)
Quarter: 2010Q1

REPORT INFORMATION
  Report Type: 
  Country: None (occurrence: None)
  Receive Date: 20100212
  Receipt Date: 20100202
  Transmission Date: 20100710
  Serious: Yes (Death)
  Sender: FDA-Public Use
  Company Number: 2009SP043221

PATIENT
  Age: 73 Year
  Sex: Female

DRUGS (6)
  1. MIRTAZAPINE [Suspect]
     Indication: DEPRESSION
     Dosage: 7.5 MG, QD, PO
     Route: 048
     Dates: start: 20091214, end: 20091216
  2. FLUVOXAMINE MALEATE [Suspect]
     Indication: DEPRESSION
     Dosage: 100 MG, QD, PO
     Route: 048
     Dates: start: 20090928, end: 20091216
  3. AKINETON [Suspect]
     Indication: ADVERSE EVENT
     Dosage: 2 MG, QD; PO
     Route: 048
     Dates: start: 20080801, end: 20091216
  4. SILECE (FLUNITRAZEPAM) [Suspect]
     Indication: INSOMNIA
     Dosage: 2 MG, QD, PO
     Route: 048
     Dates: start: 20080801, end: 20091216
  5. PROMETHAZINE HCL [Suspect]
     Indication: ADVERSE EVENT
     Dosage: 10 MG, QD, PO
     Route: 048
     Dates: start: 20090810, end: 20091216
  6. AMOBAN (ZOPICLONE) [Suspect]
     Indication: INSOMNIA
     Dosage: 7.5 MG, QD, PO
     Route: 048
     Dates: start: 20080101, end: 20091216

REACTIONS (7)
  - ALCOHOL USE [None]
  - APATHY [None]
  - BREAST CANCER FEMALE [None]
  - COMPLETED SUICIDE [None]
  - OVERDOSE [None]
  - PAIN [None]
  - VISUAL FIELD DEFECT [None]
